FAERS Safety Report 17131140 (Version 1)
Quarter: 2019Q4

REPORT INFORMATION
  Report Type: Report from Study
  Country: CA (occurrence: CA)
  Receive Date: 20191209
  Receipt Date: 20191209
  Transmission Date: 20200122
  Serious: Yes (Life-Threatening, Hospitalization, Other)
  Sender: FDA-Public Use
  Company Number: CA-009507513-1710CAN000641

PATIENT
  Sex: Female

DRUGS (3)
  1. TEMODAL [Suspect]
     Active Substance: TEMOZOLOMIDE
     Indication: GLIOBLASTOMA MULTIFORME
     Dosage: 140 MG, DAILY FOR 21 DAYS
     Route: 048
     Dates: start: 201705, end: 201707
  2. TEMODAL [Suspect]
     Active Substance: TEMOZOLOMIDE
     Indication: GLIOBLASTOMA MULTIFORME
     Dosage: UNK, DAILY FOR 5 DAYS
     Route: 048
     Dates: start: 201705
  3. TEMODAL [Suspect]
     Active Substance: TEMOZOLOMIDE
     Indication: GLIOBLASTOMA MULTIFORME
     Dosage: 145 MILLIGRAM, DAILY FOR 21 DAYS.
     Route: 048

REACTIONS (8)
  - Adverse event [Not Recovered/Not Resolved]
  - Thrombosis [Unknown]
  - Malaise [Unknown]
  - Recurrent cancer [Unknown]
  - Seizure [Unknown]
  - Urinary tract infection [Unknown]
  - Brain oedema [Unknown]
  - Adverse event [Unknown]

NARRATIVE: CASE EVENT DATE: 2017
